FAERS Safety Report 7158376-0 (Version None)
Quarter: 2010Q4

REPORT INFORMATION
  Report Type: 
  Country: None (occurrence: None)
  Receive Date: 20101214
  Receipt Date: 20101209
  Transmission Date: 20110411
  Serious: No
  Sender: FDA-Public Use
  Company Number: US-TEVA-259601USA

PATIENT
  Sex: Female

DRUGS (13)
  1. COPAXONE [Suspect]
     Indication: MULTIPLE SCLEROSIS
     Route: 058
     Dates: start: 20100801
  2. ASTILIN SPRAY [Concomitant]
     Indication: HYPERSENSITIVITY
  3. MOMETASONE FUROATE [Concomitant]
     Indication: HYPERSENSITIVITY
  4. MONTELUKAST [Concomitant]
  5. CLONAZEPAM [Concomitant]
  6. DULOXETINE HYDROCHLORIDE [Concomitant]
  7. LOTREL [Concomitant]
  8. SIMVASTATIN [Concomitant]
  9. ESTROGENS CONJUGATED [Concomitant]
  10. BACLOFEN [Concomitant]
  11. DICLOFENAC [Concomitant]
  12. ALPRAZOLAM [Concomitant]
  13. BUSPIRONE HCL [Concomitant]

REACTIONS (1)
  - RHINITIS ALLERGIC [None]
